FAERS Safety Report 8604494-7 (Version None)
Quarter: 2012Q3

REPORT INFORMATION
  Report Type: 
  Country: None (occurrence: None)
  Receive Date: 20120820
  Receipt Date: 20120813
  Transmission Date: 20120928
  Serious: No
  Sender: FDA-Public Use
  Company Number: US-PFIZER INC-2012198566

PATIENT
  Age: 75 Year
  Sex: Female
  Weight: 90.7 kg

DRUGS (3)
  1. LIPITOR [Concomitant]
     Indication: BLOOD CHOLESTEROL INCREASED
     Dosage: 5 MG,1X/DAY
     Route: 048
  2. TOVIAZ [Suspect]
     Indication: URINARY INCONTINENCE
     Dosage: UNK, 1X/DAY
     Route: 048
     Dates: start: 20120101, end: 20120813
  3. PREDNISONE [Concomitant]
     Indication: TEMPORAL ARTERITIS
     Dosage: 5 MG, 1X/DAY

REACTIONS (3)
  - DRY MOUTH [None]
  - HYPERHIDROSIS [None]
  - SOMNOLENCE [None]
